FAERS Safety Report 10230212 (Version 1)
Quarter: 2014Q2

REPORT INFORMATION
  Report Type: Report from Study
  Country: CA (occurrence: CA)
  Receive Date: 20140611
  Receipt Date: 20140611
  Transmission Date: 20141212
  Serious: Yes (Other)
  Sender: FDA-Public Use
  Company Number: CA-JNJFOC-20140603005

PATIENT
  Age: 31 Year
  Sex: Male
  Weight: 92 kg

DRUGS (5)
  1. REMICADE [Suspect]
     Indication: PSORIASIS
     Route: 042
     Dates: start: 20080925
  2. ALLOPURINOL [Concomitant]
     Dosage: DOSE: ^1 CO^
     Route: 065
  3. FOLIC ACID [Concomitant]
     Route: 065
  4. METHOTREXATE [Concomitant]
     Dosage: 5 PILLS WEEKLY
     Route: 065
  5. COLCHICINE [Concomitant]
     Route: 065

REACTIONS (9)
  - Joint swelling [Not Recovered/Not Resolved]
  - Chills [Not Recovered/Not Resolved]
  - Pyrexia [Not Recovered/Not Resolved]
  - Hypertension [Not Recovered/Not Resolved]
  - Heart rate decreased [Not Recovered/Not Resolved]
  - Chromaturia [Not Recovered/Not Resolved]
  - Pilonidal cyst [Not Recovered/Not Resolved]
  - Infection [Not Recovered/Not Resolved]
  - Cyst [Not Recovered/Not Resolved]
